FAERS Safety Report 10050987 (Version 2)
Quarter: 2014Q2

REPORT INFORMATION
  Report Type: Report from Study
  Country: JP (occurrence: JP)
  Receive Date: 20140401
  Receipt Date: 20140408
  Transmission Date: 20141212
  Serious: Yes (Hospitalization)
  Sender: FDA-Public Use
  Company Number: JP-OTSUKA-US-2014-10619

PATIENT
  Age: 31 Year
  Sex: Male

DRUGS (4)
  1. BLINDED OPC-14597 [Suspect]
     Indication: BIPOLAR I DISORDER
     Dosage: UNK
     Dates: start: 20131127, end: 20140122
  2. BLINDED OPC-14597 [Suspect]
     Dosage: 400 MG MILLIGRAM(S), UNK
     Route: 030
     Dates: start: 20140123, end: 20140320
  3. ALLOPURINOL [Concomitant]
     Indication: HYPERURICAEMIA
     Dosage: 100 MG MILLIGRAM(S), UNK
     Route: 048
     Dates: start: 20131019
  4. SITAGLIPTIN [Concomitant]
     Indication: TYPE 2 DIABETES MELLITUS
     Dosage: 50 MG MILLIGRAM(S), UNK
     Route: 048
     Dates: start: 20131116

REACTIONS (1)
  - Mania [Not Recovered/Not Resolved]
